FAERS Safety Report 9007464 (Version 4)
Quarter: 2013Q2

REPORT INFORMATION
  Report Type: Spontaneous
  Country: JP (occurrence: JP)
  Receive Date: 20130110
  Receipt Date: 20130409
  Transmission Date: 20140414
  Serious: No
  Sender: FDA-Public Use
  Company Number: JP-AMGEN-JPNSP2012081075

PATIENT
  Age: 80 Year
  Sex: Male
  Weight: 45 kg

DRUGS (7)
  1. ARANESP [Suspect]
     Indication: NEPHROGENIC ANAEMIA
     Dosage: 20 MUG, QWK
     Dates: start: 201210
  2. ARANESP [Suspect]
     Dosage: 40 MUG, QWK
     Route: 040
     Dates: start: 20121208, end: 20121215
  3. ARANESP [Suspect]
     Dosage: 60 MUG, QWK
     Route: 040
     Dates: start: 20121215
  4. EPOETIN ALFA [Suspect]
     Indication: NEPHROGENIC ANAEMIA
     Dosage: 1500 IU, QD
     Route: 042
  5. EPOETIN ALFA [Suspect]
     Dosage: 1500 IU, BID
     Route: 042
     Dates: start: 20121129
  6. EPOETIN ALFA [Suspect]
     Dosage: 1500 IU, 2X/WEEK
     Route: 042
     Dates: start: 20121129, end: 20121201
  7. EPOETIN ALFA [Suspect]
     Dosage: 3000 IU, 3X/WEEK
     Route: 042
     Dates: start: 20121201, end: 20121208

REACTIONS (1)
  - Drug ineffective [Recovered/Resolved]
